FAERS Safety Report 16342534 (Version 1)
Quarter: 2019Q2

REPORT INFORMATION
  Report Type: Spontaneous
  Country: US (occurrence: US)
  Receive Date: 20190522
  Receipt Date: 20190522
  Transmission Date: 20190711
  Serious: No
  Sender: FDA-Public Use
  Company Number: US-PERRIGO-19US006037

PATIENT
  Age: 68 Year
  Sex: Female
  Weight: 86.17 kg

DRUGS (3)
  1. ACYCLOVIR. [Suspect]
     Active Substance: ACYCLOVIR
     Dosage: SMALL AMOUNT, 5 TIMES PER DAY
     Route: 045
     Dates: start: 201903
  2. ACYCLOVIR. [Suspect]
     Active Substance: ACYCLOVIR
     Indication: ORAL HERPES
     Dosage: SMALL AMOUNT, 5 TIMES PER DAY
     Route: 061
     Dates: start: 201903
  3. GABAPENTIN. [Concomitant]
     Active Substance: GABAPENTIN
     Indication: LICHEN SCLEROSUS
     Dosage: 300 MG
     Route: 065

REACTIONS (1)
  - Product administered at inappropriate site [Unknown]

NARRATIVE: CASE EVENT DATE: 201903
